FAERS Safety Report 7984673-2 (Version None)
Quarter: 2011Q4

REPORT INFORMATION
  Report Type: 
  Country: None (occurrence: None)
  Receive Date: 20111216
  Receipt Date: 20111110
  Transmission Date: 20120403
  Serious: Yes (Other)
  Sender: FDA-Public Use
  Company Number: US-GLAXOSMITHKLINE-A0919445A

PATIENT
  Age: 85 Year
  Sex: Female

DRUGS (8)
  1. WARFARIN SODIUM [Concomitant]
  2. PROMACTA [Suspect]
     Indication: IDIOPATHIC THROMBOCYTOPENIC PURPURA
     Dosage: 25MG PER DAY
     Route: 048
     Dates: start: 20090601, end: 20110607
  3. LISINOPRIL [Concomitant]
  4. BONIVA [Concomitant]
  5. MULTI-VITAMIN [Concomitant]
  6. IMMUNE GLOBULIN INTRAVENOUS (HUMAN) [Concomitant]
     Indication: THROMBOCYTOPENIA
  7. LASIX [Concomitant]
  8. NORVASC [Concomitant]

REACTIONS (2)
  - DEEP VEIN THROMBOSIS [None]
  - PLATELET COUNT INCREASED [None]
